FAERS Safety Report 9798618 (Version 1)
Quarter: 2014Q1

REPORT INFORMATION
  Report Type: Spontaneous
  Country: US (occurrence: US)
  Receive Date: 20140106
  Receipt Date: 20140106
  Transmission Date: 20141002
  Serious: Yes (Other)
  Sender: FDA-Public Use
  Company Number: US-PFIZER INC-2014002491

PATIENT
  Age: 62 Year
  Sex: Female
  Weight: 104.31 kg

DRUGS (5)
  1. CELEBREX [Suspect]
     Indication: FIBROMYALGIA
     Dosage: 100 MG, 2X/DAY
     Route: 048
  2. CELEBREX [Suspect]
     Indication: INTERVERTEBRAL DISC PROTRUSION
  3. CELEBREX [Suspect]
     Indication: ARTHRITIS
  4. CYMBALTA [Concomitant]
     Dosage: UNK, 2X/DAY
  5. HYDROCODONE [Concomitant]
     Dosage: UNK, AS NEEDED

REACTIONS (3)
  - Carpal tunnel syndrome [Unknown]
  - Off label use [Unknown]
  - Pain in extremity [Unknown]
